FAERS Safety Report 10166081 (Version 2)
Quarter: 2014Q2

REPORT INFORMATION
  Report Type: Report from Study
  Country: NL (occurrence: NL)
  Receive Date: 20140512
  Receipt Date: 20140512
  Transmission Date: 20141212
  Serious: Yes (Death)
  Sender: FDA-Public Use
  Company Number: NL-ROCHE-1388910

PATIENT
  Age: 72 Year
  Sex: Male
  Weight: 69 kg

DRUGS (6)
  1. BEVACIZUMAB [Suspect]
     Indication: GASTRIC CANCER
     Dosage: START DATE LAST TREATMENT ON 08/NOV/2013
     Route: 042
     Dates: start: 20130628
  2. CAPECITABINE [Suspect]
     Indication: GASTRIC CANCER
     Dosage: START DATE LAST TREATMENT ON 27/NOV/2013, DAY 1-14
     Route: 048
  3. DOCETAXEL [Suspect]
     Indication: GASTRIC CANCER
     Dosage: START DATE LAST TREATMENT ON 25/NOV/2013
     Route: 042
     Dates: start: 20130628
  4. OXALIPLATIN [Suspect]
     Indication: GASTRIC CANCER
     Dosage: START DATE LAST TREATMENT ON 25/NOV/2013
     Route: 042
     Dates: start: 20130628
  5. OXYNORM [Concomitant]
     Route: 065
     Dates: start: 20131129
  6. NADROPARINE [Concomitant]
     Route: 065
     Dates: start: 20131129

REACTIONS (1)
  - Ileus [Fatal]
